FAERS Safety Report 19997477 (Version 11)
Quarter: 2022Q3

REPORT INFORMATION
  Report Type: Report from Study
  Country: US (occurrence: US)
  Receive Date: 20211026
  Receipt Date: 20220916
  Transmission Date: 20221027
  Serious: No
  Sender: FDA-Public Use
  Company Number: NVSC2021US243361

PATIENT
  Age: 67 Year
  Sex: Male

DRUGS (6)
  1. ENTRESTO [Suspect]
     Active Substance: SACUBITRIL\VALSARTAN
     Indication: Product used for unknown indication
     Dosage: 50 MG, BID (24.3 MG OF SACUBITRIL AND 25.7 MG OF VALSARTAN)
     Route: 048
  2. ENTRESTO [Suspect]
     Active Substance: SACUBITRIL\VALSARTAN
     Dosage: 50 MG, BID (24.3 MG OF SACUBITRIL AND 25.7 MG OF VALSARTAN)
     Route: 048
  3. ENTRESTO [Suspect]
     Active Substance: SACUBITRIL\VALSARTAN
     Dosage: 50 MG, BID (24.3 MG OF SACUBITRIL AND 25.7 MG OF VALSARTAN)
     Route: 048
  4. ENTRESTO [Suspect]
     Active Substance: SACUBITRIL\VALSARTAN
     Route: 048
  5. ENTRESTO [Suspect]
     Active Substance: SACUBITRIL\VALSARTAN
     Dosage: 50 MG, BID ((24.3 MG OF SACUBITRIL AND 25.7 MG OF VALSARTAN))
     Route: 048
  6. ENTRESTO [Suspect]
     Active Substance: SACUBITRIL\VALSARTAN
     Dosage: 50 MG, BID (24.3 MG OF SACUBITRIL AND 25.7 MG OF VALSARTAN)
     Route: 065

REACTIONS (11)
  - Amnesia [Unknown]
  - Arthritis [Unknown]
  - Sleep apnoea syndrome [Unknown]
  - Stress [Unknown]
  - Nervousness [Unknown]
  - General physical health deterioration [Unknown]
  - Depression [Unknown]
  - Cardiac disorder [Unknown]
  - Somnolence [Unknown]
  - Dyspnoea [Unknown]
  - Insomnia [Unknown]

NARRATIVE: CASE EVENT DATE: 20220301
